FAERS Safety Report 10188458 (Version 1)
Quarter: 2014Q2

REPORT INFORMATION
  Report Type: Spontaneous
  Country: US (occurrence: US)
  Receive Date: 20140522
  Receipt Date: 20140522
  Transmission Date: 20141212
  Serious: Yes (Other)
  Sender: FDA-Public Use
  Company Number: US-TARO PHARMACEUTICALS U.S.A., INC-2014SUN01112

PATIENT
  Age: 29 Year
  Sex: Female

DRUGS (2)
  1. LEVETIRACETAM [Suspect]
     Indication: IDIOPATHIC GENERALISED EPILEPSY
     Dosage: 500 MG, BID,
     Route: 065
  2. LEVETIRACETAM [Suspect]
     Dosage: 1000 MG, BID
     Route: 065

REACTIONS (2)
  - Convulsion [Recovered/Resolved]
  - Exposure during pregnancy [Unknown]
